FAERS Safety Report 6989670-1 (Version None)
Quarter: 2010Q3

REPORT INFORMATION
  Report Type: 
  Country: None (occurrence: None)
  Receive Date: 20100916
  Receipt Date: 20100201
  Transmission Date: 20110219
  Serious: Yes (Other)
  Sender: FDA-Public Use
  Company Number: DE-PFIZER INC-2010012639

PATIENT
  Age: 77 Year
  Sex: Male

DRUGS (7)
  1. LYRICA [Suspect]
     Indication: POLYNEUROPATHY
     Dosage: 75 MG, 2X/DAY
     Route: 048
     Dates: start: 20100126
  2. DIOVAN HCT [Concomitant]
  3. METOPROLOL [Concomitant]
  4. VOLTAREN DISPERS ^NOVARTIS^ [Concomitant]
  5. ASPIRIN [Concomitant]
  6. PARACETAMOL [Concomitant]
  7. NOVALGIN [Concomitant]

REACTIONS (11)
  - DRY EYE [None]
  - DRY MOUTH [None]
  - EYE PAIN [None]
  - EYE SWELLING [None]
  - GAIT DISTURBANCE [None]
  - INTRAOCULAR PRESSURE INCREASED [None]
  - JOINT STIFFNESS [None]
  - MEMORY IMPAIRMENT [None]
  - MYALGIA [None]
  - PAIN IN EXTREMITY [None]
  - SPEECH DISORDER [None]
